FAERS Safety Report 6407538-6 (Version None)
Quarter: 2009Q4

REPORT INFORMATION
  Report Type: 
  Country: None (occurrence: None)
  Receive Date: 20091020
  Receipt Date: 20091012
  Transmission Date: 20100525
  Serious: Yes (Other)
  Sender: FDA-Public Use
  Company Number: GB-TEVA-212332ISR

PATIENT
  Age: 37 Year
  Sex: Male

DRUGS (3)
  1. CHLORAMPHENICOL [Suspect]
     Indication: CONJUNCTIVITIS
     Dosage: 0.5%, ONE DROP IN EACH EYE EVERY 2 HOURS FOR 24 HOURS
  2. CHLORAMPHENICOL [Suspect]
     Dosage: 0.5%, ONE DROP EVERY 6 HOURS FOR 4 DAYS
  3. CHLORAMPHENICOL [Concomitant]

REACTIONS (1)
  - HEPATITIS [None]
